FAERS Safety Report 9924487 (Version 3)
Quarter: 2014Q1

REPORT INFORMATION
  Report Type: Report from Study
  Country: NL (occurrence: NL)
  Receive Date: 20140226
  Receipt Date: 20140320
  Transmission Date: 20141002
  Serious: Yes (Hospitalization)
  Sender: FDA-Public Use
  Company Number: BE-ASTELLAS-2013US008005

PATIENT
  Age: 7 Year
  Sex: Male

DRUGS (5)
  1. TACROLIMUS OINTMENT [Suspect]
     Indication: DERMATITIS ATOPIC
     Dosage: 0.03 %, UNKNOWN/D
     Route: 061
     Dates: start: 20080215
  2. FLIXOTIDE [Concomitant]
     Indication: ASTHMA
     Dosage: 250 UG, BID
     Route: 055
  3. VENTOLIN                           /00139501/ [Concomitant]
     Indication: ASTHMA
     Dosage: 100 UG, 6DD1-2
     Route: 055
  4. A. VOGEL CINUFORCE [Concomitant]
     Indication: PRODUCT USED FOR UNKNOWN INDICATION
     Dosage: UNK
     Route: 065
  5. TRIAMCINOLONE ACETONIDE [Concomitant]
     Indication: DERMATITIS ATOPIC
     Dosage: UNK
     Route: 065

REACTIONS (1)
  - Asthma [Recovered/Resolved]
